FAERS Safety Report 5125597-8 (Version None)
Quarter: 2006Q4

REPORT INFORMATION
  Report Type: 
  Country: None (occurrence: None)
  Receive Date: 20061006
  Receipt Date: 20060922
  Transmission Date: 20070319
  Serious: Yes (Other)
  Sender: FDA-Public Use
  Company Number: 2006US002164

PATIENT
  Age: 13 Year
  Sex: Female

DRUGS (3)
  1. PROGRAF [Suspect]
     Indication: PROPHYLAXIS AGAINST TRANSPLANT REJECTION
  2. PREDNISONE TAB [Concomitant]
  3. MYCOPHENOLATE MOFETIL [Concomitant]

REACTIONS (8)
  - CONVERSION DISORDER [None]
  - CONVULSION [None]
  - COORDINATION ABNORMAL [None]
  - MARROW HYPERPLASIA [None]
  - PANCYTOPENIA [None]
  - PETIT MAL EPILEPSY [None]
  - PSEUDOBULBAR PALSY [None]
  - PYREXIA [None]
